FAERS Safety Report 9097184 (Version 2)
Quarter: 2013Q1

REPORT INFORMATION
  Report Type: Spontaneous
  Country: US (occurrence: US)
  Receive Date: 20130212
  Receipt Date: 20130314
  Transmission Date: 20140127
  Serious: Yes (Hospitalization, Other)
  Sender: FDA-Public Use
  Company Number: IL-WATSON-2013-01993

PATIENT
  Age: 6 Year
  Sex: Female
  Weight: 29 kg

DRUGS (1)
  1. GLIPIZIDE [Suspect]
     Indication: PRODUCT USED FOR UNKNOWN INDICATION
     Dosage: 0.35 MG/KG MILLIGRAM(S)/KILOGRAM
     Route: 048

REACTIONS (7)
  - Hypoglycaemia [Recovered/Resolved]
  - Somnolence [Unknown]
  - Fatigue [Unknown]
  - Headache [Unknown]
  - Accidental exposure to product [Recovered/Resolved]
  - Medication error [Recovered/Resolved]
  - Overdose [Recovered/Resolved]
